FAERS Safety Report 9685228 (Version 1)
Quarter: 2013Q4

REPORT INFORMATION
  Report Type: Spontaneous
  Country: US (occurrence: None)
  Receive Date: 20131112
  Receipt Date: 20131112
  Transmission Date: 20140711
  Serious: No
  Sender: FDA-Public Use
  Company Number: None

PATIENT
  Age: 59 Year
  Sex: Male
  Weight: 77 kg

DRUGS (1)
  1. XALKORI [Suspect]
     Indication: LUNG NEOPLASM MALIGNANT
     Dosage: 1 PILL BID ORAL
     Route: 048

REACTIONS (6)
  - Pneumonitis [None]
  - Abdominal pain [None]
  - Abdominal distension [None]
  - Constipation [None]
  - Toxicity to various agents [None]
  - Respiratory failure [None]
